FAERS Safety Report 19567003 (Version 39)
Quarter: 2022Q4

REPORT INFORMATION
  Report Type: Spontaneous
  Country: GB (occurrence: GB)
  Receive Date: 20210714
  Receipt Date: 20221010
  Transmission Date: 20230113
  Serious: Yes (Hospitalization, Other)
  Sender: FDA-Public Use
  Company Number: GB-SA-2021SA224589

PATIENT
  Age: 68 Year
  Sex: Female
  Weight: 92 kg

DRUGS (83)
  1. IRBESARTAN [Suspect]
     Active Substance: IRBESARTAN
     Indication: Abdominal discomfort
     Dosage: 150 G, QD
     Route: 065
     Dates: start: 20100912
  2. IRBESARTAN [Suspect]
     Active Substance: IRBESARTAN
     Indication: Depression
     Dosage: 150 MG, QD
     Dates: start: 20100917
  3. IRBESARTAN [Suspect]
     Active Substance: IRBESARTAN
     Indication: Product used for unknown indication
  4. CARBOCYSTEINE [Suspect]
     Active Substance: CARBOCYSTEINE
     Indication: Rheumatoid arthritis
     Dosage: 750 MG, QD
     Route: 065
     Dates: start: 20100917
  5. CARBOCYSTEINE [Suspect]
     Active Substance: CARBOCYSTEINE
     Indication: Overdose
     Dosage: 750 MG, QD
     Dates: start: 20200917
  6. CARBOCYSTEINE [Suspect]
     Active Substance: CARBOCYSTEINE
     Indication: Off label use
     Dosage: 750 MG, QD
     Route: 065
     Dates: start: 20210917
  7. CIPROFLOXACIN HYDROCHLORIDE [Suspect]
     Active Substance: CIPROFLOXACIN HYDROCHLORIDE
     Indication: Depression
     Dosage: 1000 MG, QD
     Route: 065
     Dates: start: 20100917
  8. CIPROFLOXACIN HYDROCHLORIDE [Suspect]
     Active Substance: CIPROFLOXACIN HYDROCHLORIDE
     Indication: Abdominal discomfort
     Dosage: 1000 MG, QD
     Dates: start: 20200917
  9. CIPROFLOXACIN HYDROCHLORIDE [Suspect]
     Active Substance: CIPROFLOXACIN HYDROCHLORIDE
     Indication: Rheumatoid arthritis
  10. OMEPRAZOLE [Suspect]
     Active Substance: OMEPRAZOLE
     Indication: Abdominal discomfort
     Dosage: 20 MG, QID
     Route: 065
     Dates: start: 20100917
  11. OMEPRAZOLE [Suspect]
     Active Substance: OMEPRAZOLE
     Dosage: 40 MG, QD
     Dates: start: 20100917
  12. OMEPRAZOLE [Suspect]
     Active Substance: OMEPRAZOLE
     Dosage: 20 MG, 4 TIMES PER DAY
     Dates: start: 20100917
  13. OMEPRAZOLE [Suspect]
     Active Substance: OMEPRAZOLE
     Dosage: 20 MG, QD
     Dates: start: 20100917
  14. OMEPRAZOLE [Suspect]
     Active Substance: OMEPRAZOLE
     Dosage: 20 MG, QH
  15. OMEPRAZOLE [Suspect]
     Active Substance: OMEPRAZOLE
     Dosage: 20 MG, QD
     Dates: start: 20200917
  16. ZINC [Suspect]
     Active Substance: ZINC
     Indication: Depression
     Dosage: 750 MG, QD
  17. ZINC [Suspect]
     Active Substance: ZINC
     Indication: Abdominal discomfort
  18. CARBAMAZEPINE [Suspect]
     Active Substance: CARBAMAZEPINE
     Indication: Depression
     Dosage: 1000 MG, QD
     Dates: start: 20100917
  19. CARBAMAZEPINE [Suspect]
     Active Substance: CARBAMAZEPINE
     Indication: Rheumatoid arthritis
     Dosage: 750 MG, QD
     Dates: start: 20100917
  20. CARBAMAZEPINE [Suspect]
     Active Substance: CARBAMAZEPINE
     Indication: Abdominal discomfort
     Dosage: 750 MG, QD
     Dates: start: 20200917
  21. CARBAMAZEPINE [Suspect]
     Active Substance: CARBAMAZEPINE
     Dosage: 750 MG
     Dates: start: 20210917
  22. VENLAFAXINE HYDROCHLORIDE [Suspect]
     Active Substance: VENLAFAXINE HYDROCHLORIDE
     Indication: Depression
     Dosage: 225 MG, QD
  23. VENLAFAXINE HYDROCHLORIDE [Suspect]
     Active Substance: VENLAFAXINE HYDROCHLORIDE
     Indication: Rheumatoid arthritis
  24. METHOTREXATE [Suspect]
     Active Substance: METHOTREXATE
     Indication: Rheumatoid arthritis
     Dosage: 17.5 MG, QW
     Route: 065
     Dates: start: 20100917
  25. METHOTREXATE [Suspect]
     Active Substance: METHOTREXATE
     Indication: Medication error
     Dosage: UNK UNK, QW
     Route: 065
  26. METHOTREXATE [Suspect]
     Active Substance: METHOTREXATE
     Dosage: 18 MG, QW
     Dates: start: 20100917
  27. AMINOPHYLLINE [Suspect]
     Active Substance: AMINOPHYLLINE
     Indication: Product used for unknown indication
     Dosage: 400 MG, QD
     Route: 065
     Dates: start: 20100917
  28. AMINOPHYLLINE [Suspect]
     Active Substance: AMINOPHYLLINE
     Dosage: 400 MG, QD
     Dates: start: 20200917
  29. CIPROFLOXACIN [Suspect]
     Active Substance: CIPROFLOXACIN
     Indication: Rheumatoid arthritis
     Dosage: 1000 MG, QD
     Dates: start: 20100917
  30. CIPROFLOXACIN [Suspect]
     Active Substance: CIPROFLOXACIN
     Indication: Abdominal discomfort
     Dosage: 1000 MG, QD
     Dates: start: 20200917
  31. CIPROFLOXACIN [Suspect]
     Active Substance: CIPROFLOXACIN
     Indication: Depression
  32. SULFAGUANIDINE [Suspect]
     Active Substance: SULFAGUANIDINE
     Indication: Abdominal discomfort
     Dosage: 750 MG, QD
  33. AMOXICILLIN [Suspect]
     Active Substance: AMOXICILLIN
     Indication: Abdominal discomfort
     Dosage: 25 MG/ML
     Dates: start: 20210904
  34. AMOXICILLIN [Suspect]
     Active Substance: AMOXICILLIN
     Dosage: 125 MG/ 5 ML
     Dates: start: 20210904
  35. THEOPHYLLINE [Suspect]
     Active Substance: THEOPHYLLINE
     Indication: Depression
     Dosage: 750 MG, QD
  36. DIETARY SUPPLEMENT\PROBIOTICS [Suspect]
     Active Substance: DIETARY SUPPLEMENT\PROBIOTICS
     Indication: Abdominal discomfort
     Dosage: 750 MG
  37. DIETARY SUPPLEMENT\PROBIOTICS [Suspect]
     Active Substance: DIETARY SUPPLEMENT\PROBIOTICS
     Indication: Depression
  38. ENBREL [Suspect]
     Active Substance: ETANERCEPT
     Indication: Rheumatoid arthritis
     Dosage: 50 MG, QW
     Route: 058
     Dates: start: 20100917
  39. ENBREL [Suspect]
     Active Substance: ETANERCEPT
     Dosage: 50 MG
     Dates: start: 20210917
  40. PHYLLOCONTIN [Suspect]
     Active Substance: AMINOPHYLLINE
     Dosage: 400 MG, QD
     Route: 065
     Dates: start: 20100917
  41. PHYLLOCONTIN [Suspect]
     Active Substance: AMINOPHYLLINE
     Dosage: 400 MG
     Dates: start: 20200917
  42. VENLAFAXINE HYDROCHLORIDE [Suspect]
     Active Substance: VENLAFAXINE HYDROCHLORIDE
     Indication: Rheumatoid arthritis
     Dosage: 225 MG, QD
  43. VENLAFAXINE HYDROCHLORIDE [Suspect]
     Active Substance: VENLAFAXINE HYDROCHLORIDE
     Indication: Depression
  44. THEOPHYLLINE [Suspect]
     Active Substance: THEOPHYLLINE
     Indication: Depression
     Dosage: 750 MG, QD
  45. THEOPHYLLINE [Suspect]
     Active Substance: THEOPHYLLINE
     Indication: Abdominal discomfort
  46. ACTIVATED CHARCOAL [Suspect]
     Active Substance: ACTIVATED CHARCOAL
     Indication: Product used for unknown indication
     Dosage: 750 MG, QD
  47. PROBIOTICS NOS [Suspect]
     Active Substance: PROBIOTICS NOS
     Indication: Depression
     Dosage: 750 MG
  48. PROBIOTICS NOS [Suspect]
     Active Substance: PROBIOTICS NOS
     Indication: Abdominal discomfort
  49. GUANIDINE [Suspect]
     Active Substance: GUANIDINE
     Indication: Depression
     Dosage: 750 MG, QD
  50. GUANIDINE [Suspect]
     Active Substance: GUANIDINE
     Indication: Abdominal discomfort
     Dosage: 750 MG
  51. GUANIDINE [Suspect]
     Active Substance: GUANIDINE
     Dosage: UNK UNK, QD
  52. BIFIDOBACTERIUM LONGUM [Suspect]
     Active Substance: BIFIDOBACTERIUM LONGUM
     Dosage: UNK
  53. BIFIDOBACTERIUM LONGUM [Suspect]
     Active Substance: BIFIDOBACTERIUM LONGUM
     Dosage: 750 MG
  54. LACTOBACILLUS RHAMNOSUS [Suspect]
     Active Substance: LACTOBACILLUS RHAMNOSUS
     Indication: Depression
     Dosage: 750 MG
  55. CIPROFLOXACIN [Suspect]
     Active Substance: CIPROFLOXACIN
     Indication: Product used for unknown indication
     Dosage: 1000 MG, DAILY
     Route: 065
     Dates: start: 20100917
  56. CIPROFLOXACIN [Suspect]
     Active Substance: CIPROFLOXACIN
     Indication: Depression
     Dosage: 1000 MG, QD, 1000 MG, DAILY
     Dates: start: 20200917
  57. CIPROFLOXACIN [Suspect]
     Active Substance: CIPROFLOXACIN
     Indication: Abdominal discomfort
  58. CIPROFLOXACIN [Suspect]
     Active Substance: CIPROFLOXACIN
     Indication: Rheumatoid arthritis
  59. DIPHENYLGUANIDINE [Suspect]
     Active Substance: DIPHENYLGUANIDINE
     Indication: Product used for unknown indication
     Dosage: 750 MILLIGRAM, ONCE A DAY
  60. DIPHENYLGUANIDINE [Suspect]
     Active Substance: DIPHENYLGUANIDINE
     Indication: Depression
     Dosage: 750 MILLIGRAM, ONCE A DAY
  61. DIPHENYLGUANIDINE [Suspect]
     Active Substance: DIPHENYLGUANIDINE
     Indication: Abdominal discomfort
  62. LEVOTHYROXINE [Concomitant]
     Active Substance: LEVOTHYROXINE
     Indication: Abdominal discomfort
     Dosage: UNK
     Route: 016
  63. LEVOTHYROXINE [Concomitant]
     Active Substance: LEVOTHYROXINE
     Indication: Product used for unknown indication
     Dosage: UNKNOWN
  64. ORUVAIL [Concomitant]
     Active Substance: KETOPROFEN
     Indication: Empty sella syndrome
     Dosage: UNK
     Route: 065
  65. ORUVAIL [Concomitant]
     Active Substance: KETOPROFEN
  66. ACTIVATED CHARCOAL [Concomitant]
     Active Substance: ACTIVATED CHARCOAL
     Indication: Product used for unknown indication
     Dosage: 750 MG
  67. ACTIVATED CHARCOAL [Concomitant]
     Active Substance: ACTIVATED CHARCOAL
  68. ACTIVATED CHARCOAL [Concomitant]
     Active Substance: ACTIVATED CHARCOAL
  69. CETIRIZINE [Concomitant]
     Active Substance: CETIRIZINE HYDROCHLORIDE
     Indication: Abdominal discomfort
     Dosage: UNK
     Route: 065
  70. CETIRIZINE [Concomitant]
     Active Substance: CETIRIZINE HYDROCHLORIDE
     Indication: Product used for unknown indication
     Dosage: UNKNOWN
  71. EZETIMIBE [Concomitant]
     Active Substance: EZETIMIBE
     Indication: Product used for unknown indication
     Dosage: UNK
     Route: 065
  72. EZETIMIBE [Concomitant]
     Active Substance: EZETIMIBE
     Dosage: 50 MG, QW, MYCLIC PEN
     Dates: start: 20100917
  73. EZETIMIBE [Concomitant]
     Active Substance: EZETIMIBE
     Dosage: 50 MG, QW, MYCLIC PEN
     Dates: start: 20210917
  74. BENDROFLUMETHIAZIDE [Concomitant]
     Active Substance: BENDROFLUMETHIAZIDE
     Indication: Depression
     Dosage: 750 MG
     Route: 065
  75. BENDROFLUMETHIAZIDE [Concomitant]
     Active Substance: BENDROFLUMETHIAZIDE
     Indication: Pituitary tumour
  76. FOLIC ACID [Concomitant]
     Active Substance: FOLIC ACID
     Indication: Product used for unknown indication
     Dosage: UNK
     Route: 065
  77. FOLIC ACID [Concomitant]
     Active Substance: FOLIC ACID
     Indication: Product used for unknown indication
  78. CABERGOLINE [Concomitant]
     Active Substance: CABERGOLINE
     Indication: Empty sella syndrome
     Dosage: UNK
     Route: 065
  79. CABERGOLINE [Concomitant]
     Active Substance: CABERGOLINE
     Indication: Pituitary tumour
  80. DOXYCYCLINE [Concomitant]
     Active Substance: DOXYCYCLINE
     Indication: Pulmonary pain
     Dosage: INHALING FOR 2 WEEKS
  81. VENLAFAXINE [Concomitant]
     Active Substance: VENLAFAXINE HYDROCHLORIDE
     Indication: Rheumatoid arthritis
  82. VENLAFAXINE [Concomitant]
     Active Substance: VENLAFAXINE HYDROCHLORIDE
     Indication: Abdominal discomfort
     Dosage: 225 MG, QD
  83. VENLAFAXINE [Concomitant]
     Active Substance: VENLAFAXINE HYDROCHLORIDE
     Dosage: 225 MG, QD

REACTIONS (12)
  - Lower respiratory tract infection [Not Recovered/Not Resolved]
  - Pulmonary pain [Unknown]
  - Abdominal discomfort [Unknown]
  - Amyloid arthropathy [Unknown]
  - Rash [Not Recovered/Not Resolved]
  - Obesity [Unknown]
  - Arthropathy [Unknown]
  - Drug abuse [Unknown]
  - Overdose [Unknown]
  - Product dose omission issue [Unknown]
  - Intentional product misuse [Unknown]
  - Off label use [Unknown]
